FAERS Safety Report 9491221 (Version 1)
Quarter: 2013Q1

REPORT INFORMATION
  Report Type: Not Available
  Country: US (occurrence: US)
  Receive Date: 20120619
  Receipt Date: 20120619
  Transmission Date: 20140127
  Serious: Yes (Hospitalization)
  Sender: FDA-Public Use
  Company Number: US-LUNDBECK-DKLU1077638

PATIENT
  Age: 0 None
  Sex: Male

DRUGS (8)
  1. SABRIL (FOR ORAL SOLUTION) [Suspect]
     Indication: INFANTILE SPASMS
     Dates: start: 20120125
  2. SABRIL (FOR ORAL SOLUTION) [Suspect]
     Indication: CONVULSION
  3. PHENOBARBITAL [Concomitant]
     Indication: CONVULSION
  4. KEPPRA [Concomitant]
     Indication: CONVULSION
  5. TOPAMAX [Concomitant]
     Indication: CONVULSION
  6. KLONOPIN [Concomitant]
     Indication: CONVULSION
  7. ALBUTEROL [Concomitant]
     Indication: PRODUCT USED FOR UNKNOWN INDICATION
  8. PULMICORT [Concomitant]
     Indication: PRODUCT USED FOR UNKNOWN INDICATION

REACTIONS (1)
  - Tracheitis [Recovered/Resolved]
